FAERS Safety Report 5806038-1 (Version None)
Quarter: 2008Q3

REPORT INFORMATION
  Report Type: 
  Country: None (occurrence: None)
  Receive Date: 20080702
  Receipt Date: 20070817
  Transmission Date: 20090109
  Serious: Yes (Hospitalization)
  Sender: FDA-Public Use
  Company Number: 2007-BP-19456BP

PATIENT
  Sex: Female

DRUGS (2)
  1. MIRAPEX [Suspect]
     Dosage: 3 MG (1MG,3 IN 1 D), PO
     Route: 048
     Dates: start: 20010101
  2. SINEMET [Concomitant]

REACTIONS (2)
  - MUSCLE SPASMS [None]
  - PNEUMONIA [None]
